FAERS Safety Report 4665052-2 (Version None)
Quarter: 2005Q2

REPORT INFORMATION
  Report Type: 
  Country: None (occurrence: None)
  Receive Date: 20050517
  Receipt Date: 20050502
  Transmission Date: 20051028
  Serious: Yes (Death)
  Sender: FDA-Public Use
  Company Number: MK200505-0085-1

PATIENT
  Age: 60 Year
  Sex: Male

DRUGS (3)
  1. OPTIRAY 350 [Suspect]
     Indication: COMPUTERISED TOMOGRAM
     Dosage: 100 ML, SINGLE USE
     Dates: start: 20050422, end: 20050422
  2. ANTI-HYPERTENSIVE [Concomitant]
  3. ANTI-DIABETIC [Concomitant]

REACTIONS (2)
  - ANAPHYLACTIC SHOCK [None]
  - ARRHYTHMIA [None]
